FAERS Safety Report 11688659 (Version 1)
Quarter: 2015Q4

REPORT INFORMATION
  Report Type: Spontaneous
  Country: SE (occurrence: SE)
  Receive Date: 20151102
  Receipt Date: 20151102
  Transmission Date: 20160304
  Serious: Yes (Other)
  Sender: FDA-Public Use
  Company Number: SE-DEXPHARM-20152040

PATIENT
  Sex: Female

DRUGS (16)
  1. IRINOTECAN [Suspect]
     Active Substance: IRINOTECAN
  2. FLUTICASONE [Suspect]
     Active Substance: FLUTICASONE\FLUTICASONE PROPIONATE
  3. FEXOFENADINE [Suspect]
     Active Substance: FEXOFENADINE\FEXOFENADINE HYDROCHLORIDE
  4. DEXAMETHASONE. [Suspect]
     Active Substance: DEXAMETHASONE
  5. SIMVASTATIN. [Suspect]
     Active Substance: SIMVASTATIN
  6. LEVOTHYROXINE. [Suspect]
     Active Substance: LEVOTHYROXINE
  7. PHENYTOIN. [Suspect]
     Active Substance: PHENYTOIN
  8. TOLTERODINE [Suspect]
     Active Substance: TOLTERODINE
  9. OMEPRAZOLE. [Suspect]
     Active Substance: OMEPRAZOLE
  10. TEMOZOLOMIDE. [Suspect]
     Active Substance: TEMOZOLOMIDE
  11. CITALOPRAM [Suspect]
     Active Substance: CITALOPRAM HYDROBROMIDE
  12. PARACETAMOL/HYDROCODONE BITARTRATE [Suspect]
     Active Substance: ACETAMINOPHEN\HYDROCODONE BITARTRATE
  13. TRAZODONE [Suspect]
     Active Substance: TRAZODONE HYDROCHLORIDE
  14. BEVACIZUMAB [Suspect]
     Active Substance: BEVACIZUMAB
  15. PINDOLOL. [Suspect]
     Active Substance: PINDOLOL
  16. BUPROPION. [Suspect]
     Active Substance: BUPROPION

REACTIONS (4)
  - White blood cell disorder [Unknown]
  - Urinary tract infection [Unknown]
  - Oesophagitis [Unknown]
  - Sepsis [Unknown]
